FAERS Safety Report 17171642 (Version 1)
Quarter: 2019Q4

REPORT INFORMATION
  Report Type: Spontaneous
  Country: US (occurrence: US)
  Receive Date: 20191218
  Receipt Date: 20191218
  Transmission Date: 20200122
  Serious: Yes (Death, Hospitalization, Other)
  Sender: FDA-Public Use
  Company Number: US-JNJFOC-20191216679

PATIENT
  Age: 66 Year
  Sex: Male
  Weight: 57.66 kg

DRUGS (4)
  1. ASPRIN [Concomitant]
     Active Substance: ASPIRIN
  2. STELARA [Suspect]
     Active Substance: USTEKINUMAB
     Indication: PSORIASIS
  3. PLAVIX [Concomitant]
     Active Substance: CLOPIDOGREL BISULFATE
  4. STELARA [Suspect]
     Active Substance: USTEKINUMAB
     Indication: PSORIATIC ARTHROPATHY
     Route: 058
     Dates: end: 201904

REACTIONS (9)
  - Staphylococcal infection [Unknown]
  - Head injury [Unknown]
  - Cerebral haemorrhage [Unknown]
  - Fall [Unknown]
  - Death [Fatal]
  - Septic shock [Unknown]
  - Vascular occlusion [Recovering/Resolving]
  - Wound [Recovering/Resolving]
  - Pain [Not Recovered/Not Resolved]

NARRATIVE: CASE EVENT DATE: 2019
